FAERS Safety Report 8185720-8 (Version None)
Quarter: 2012Q1

REPORT INFORMATION
  Report Type: 
  Country: None (occurrence: None)
  Receive Date: 20120305
  Receipt Date: 20120228
  Transmission Date: 20120608
  Serious: Yes (Other)
  Sender: FDA-Public Use
  Company Number: US-PFIZER INC-2012052972

PATIENT
  Sex: Female
  Weight: 106.58 kg

DRUGS (7)
  1. LYRICA [Suspect]
     Dosage: UNK
     Route: 048
  2. LYRICA [Suspect]
     Indication: PAIN IN EXTREMITY
     Dosage: 300 MG, 3X/DAY
     Route: 048
     Dates: start: 20070101
  3. LYRICA [Suspect]
     Dosage: 300 MG, 1X/DAY
     Route: 048
  4. ZOLOFT [Concomitant]
     Dosage: UNK
  5. AZOR [Concomitant]
     Indication: HYPERTENSION
     Dosage: UNK
  6. LYRICA [Suspect]
     Indication: NEUROPATHY PERIPHERAL
     Dosage: 300 MG, 2X/DAY
     Route: 048
  7. ASPIRIN [Concomitant]
     Dosage: UNK, AS NEEDED

REACTIONS (8)
  - WEIGHT DECREASED [None]
  - SOMNOLENCE [None]
  - EYE DISORDER [None]
  - OEDEMA PERIPHERAL [None]
  - LETHARGY [None]
  - NASOPHARYNGITIS [None]
  - FEELING ABNORMAL [None]
  - DEPRESSION [None]
